FAERS Safety Report 23977232 (Version 1)
Quarter: 2024Q2

REPORT INFORMATION
  Report Type: Spontaneous
  Country: US (occurrence: None)
  Receive Date: 20240614
  Receipt Date: 20240614
  Transmission Date: 20240716
  Serious: No
  Sender: FDA-Public Use
  Company Number: None

PATIENT
  Age: 43 Year
  Sex: Female

DRUGS (3)
  1. AMPHETAMINE\DEXTROAMPHETAMINE [Suspect]
     Active Substance: AMPHETAMINE\DEXTROAMPHETAMINE
     Indication: Attention deficit hyperactivity disorder
     Dosage: 30 TABLETS DAILY ORAL?
     Route: 048
     Dates: start: 20240604, end: 20240607
  2. BUPROPIAN [Concomitant]
  3. CHLORTHALIDONE [Concomitant]
     Active Substance: CHLORTHALIDONE

REACTIONS (6)
  - Product dispensing error [None]
  - Incorrect dose administered [None]
  - Therapeutic product effect incomplete [None]
  - Malaise [None]
  - Blood pressure increased [None]
  - Product use issue [None]

NARRATIVE: CASE EVENT DATE: 20240607
